FAERS Safety Report 7125979-9 (Version None)
Quarter: 2010Q4

REPORT INFORMATION
  Report Type: 
  Country: None (occurrence: None)
  Receive Date: 20101129
  Receipt Date: 20101116
  Transmission Date: 20110411
  Serious: Yes (Hospitalization)
  Sender: FDA-Public Use
  Company Number: FR-ROCHE-743062

PATIENT
  Sex: Male
  Weight: 72 kg

DRUGS (3)
  1. BEVACIZUMAB [Suspect]
     Indication: BRONCHIAL CARCINOMA
     Dosage: FREQUENCY: D1/ D21.
     Route: 042
     Dates: start: 20100813, end: 20101022
  2. TAXOL [Concomitant]
     Indication: BRONCHIAL CARCINOMA
     Dosage: DOSE 60/M^2
     Route: 042
     Dates: start: 20100813
  3. CARBOPLATIN [Concomitant]
     Indication: BRONCHIAL CARCINOMA
     Dosage: DOSE 320
     Route: 042
     Dates: start: 20100813

REACTIONS (1)
  - SUBCUTANEOUS EMPHYSEMA [None]
